FAERS Safety Report 7390085-5 (Version None)
Quarter: 2011Q2

REPORT INFORMATION
  Report Type: 
  Country: None (occurrence: None)
  Receive Date: 20110401
  Receipt Date: 20110114
  Transmission Date: 20111010
  Serious: Yes (Life-Threatening)
  Sender: FDA-Public Use
  Company Number: NO-PFIZER INC-2011071117

PATIENT
  Age: 75 Year
  Sex: Male

DRUGS (4)
  1. ERYTHROMYCIN [Suspect]
     Indication: ILEUS PARALYTIC
     Dosage: UNK
     Route: 042
     Dates: start: 20101125, end: 20101125
  2. AMIODARONE HCL [Interacting]
     Indication: ATRIAL FIBRILLATION
  3. HALDOL [Interacting]
     Indication: ANXIETY
     Dosage: 50 MG, UNK
     Route: 042
     Dates: start: 20101127, end: 20101129
  4. AMIODARONE HCL [Interacting]
     Indication: CARDIAC OPERATION
     Dosage: 5 G, UNK
     Dates: start: 20101117

REACTIONS (5)
  - VENTRICULAR EXTRASYSTOLES [None]
  - VENTRICULAR FIBRILLATION [None]
  - TORSADE DE POINTES [None]
  - ELECTROCARDIOGRAM QT PROLONGED [None]
  - DRUG INTERACTION [None]
